FAERS Safety Report 8513092-5 (Version None)
Quarter: 2012Q3

REPORT INFORMATION
  Report Type: 
  Country: None (occurrence: None)
  Receive Date: 20120716
  Receipt Date: 20120712
  Transmission Date: 20120928
  Serious: Yes (Hospitalization)
  Sender: FDA-Public Use
  Company Number: DE-PFIZER INC-2012167273

PATIENT
  Age: 73 Year
  Sex: Male

DRUGS (1)
  1. IBUPROFEN [Suspect]
     Indication: SPINAL PAIN
     Dosage: 600MG TO 1200MG DAILY
     Route: 048
     Dates: start: 20111216, end: 20111221

REACTIONS (1)
  - DIPLOPIA [None]
